FAERS Safety Report 8620171-0 (Version None)
Quarter: 2012Q3

REPORT INFORMATION
  Report Type: 
  Country: None (occurrence: None)
  Receive Date: 20120817
  Receipt Date: 20120817
  Transmission Date: 20120928
  Serious: No
  Sender: FDA-Public Use
  Company Number: None

PATIENT
  Age: 48 Year
  Sex: Female
  Weight: 90 kg

DRUGS (1)
  1. PALIPERIDONE [Suspect]
     Dosage: 234 MG OTHER IM
     Route: 030
     Dates: start: 20110725

REACTIONS (1)
  - INJECTION SITE INDURATION [None]
